FAERS Safety Report 19377073 (Version 1)
Quarter: 2021Q2

REPORT INFORMATION
  Report Type: Spontaneous
  Country: US (occurrence: US)
  Receive Date: 20210604
  Receipt Date: 20210604
  Transmission Date: 20210717
  Serious: No
  Sender: FDA-Public Use
  Company Number: US-PERRIGO-21US004999

PATIENT
  Age: 51 Year
  Sex: Female
  Weight: 72.56 kg

DRUGS (1)
  1. DICLOFENAC SODIUM. [Suspect]
     Active Substance: DICLOFENAC SODIUM
     Indication: PAIN
     Dosage: UNKNOWN, TID
     Route: 061
     Dates: start: 20210401, end: 20210410

REACTIONS (2)
  - Incorrect product administration duration [Recovered/Resolved]
  - Drug ineffective for unapproved indication [Recovered/Resolved]

NARRATIVE: CASE EVENT DATE: 202104
